FAERS Safety Report 9341341 (Version 1)
Quarter: 2013Q2

REPORT INFORMATION
  Report Type: Other
  Country: GB (occurrence: GB)
  Receive Date: 20130611
  Receipt Date: 20130611
  Transmission Date: 20140414
  Serious: Yes (Hospitalization)
  Sender: FDA-Public Use
  Company Number: GB-SUN PHARMACEUTICAL INDUSTRIES LTD-2013SUN00674

PATIENT
  Age: 71 Year
  Sex: Male
  Weight: 85 kg

DRUGS (12)
  1. OXALIPLATIN 5MG/ML POWDER FOR SOLUTION FOR INFUSION [Suspect]
     Indication: PANCREATIC CARCINOMA
     Dosage: 180 MG, ONCE PER 14 DAYS
     Route: 042
     Dates: start: 20121003, end: 20121205
  2. IRINOTECAN INJECTION 20MG/ML [Suspect]
     Indication: PANCREATIC CARCINOMA
     Dosage: 370 MG, ONCE PER 2 WEEKS
     Route: 042
     Dates: start: 20121003, end: 20121205
  3. 5 FLUOROURACIL [Suspect]
     Indication: PANCREATIC CARCINOMA
     Dosage: 4600 MG, ONCE PER 14 DAYS
     Route: 042
     Dates: start: 20121003
  4. 5 FLUOROURACIL [Suspect]
     Dosage: 800 MG, ONCE PER 14 DAYS
     Route: 042
     Dates: end: 20121207
  5. DEXAMETHASONE [Suspect]
     Indication: PROPHYLAXIS OF NAUSEA AND VOMITING
     Dosage: 4 MG, BID
     Route: 048
     Dates: start: 20121003, end: 20121208
  6. AMLODIPINE [Concomitant]
  7. CIPROFLOXACIN [Concomitant]
  8. CREON [Concomitant]
  9. DOMPERIDONE [Concomitant]
  10. FOLINIC ACID [Concomitant]
  11. GRANISETRON [Concomitant]
  12. THYROXINE [Concomitant]

REACTIONS (3)
  - Hypomania [Recovered/Resolved]
  - Depressed mood [Unknown]
  - Malaise [Unknown]
